FAERS Safety Report 14900345 (Version 1)
Quarter: 2018Q2

REPORT INFORMATION
  Report Type: Spontaneous
  Country: US (occurrence: US)
  Receive Date: 20180427
  Receipt Date: 20180427
  Transmission Date: 20180711
  Serious: Yes (Disabling)
  Sender: FDA-Public Use
  Company Number: None

PATIENT
  Age: 66 Year
  Sex: Female
  Weight: 90 kg

DRUGS (1)
  1. CIPRO [Suspect]
     Active Substance: CIPROFLOXACIN HYDROCHLORIDE

REACTIONS (9)
  - Panic attack [None]
  - Gait disturbance [None]
  - Crying [None]
  - Accident at work [None]
  - Loss of employment [None]
  - Nerve injury [None]
  - Feeling abnormal [None]
  - Arthritis [None]
  - Anxiety [None]

NARRATIVE: CASE EVENT DATE: 20140501
